FAERS Safety Report 19563561 (Version 1)
Quarter: 2021Q3

REPORT INFORMATION
  Report Type: Spontaneous
  Country: CN (occurrence: CN)
  Receive Date: 20210715
  Receipt Date: 20210715
  Transmission Date: 20211014
  Serious: Yes (Other)
  Sender: FDA-Public Use
  Company Number: CN-PFIZER INC-2021822959

PATIENT
  Age: 47 Year
  Sex: Female

DRUGS (6)
  1. IDARUBICIN HCL [Suspect]
     Active Substance: IDARUBICIN HYDROCHLORIDE
     Dosage: 20 MG, 1X/DAY (20 MG, 20 MG, 10 MG D1?D3 QD)
     Route: 042
  2. IDARUBICIN HCL [Suspect]
     Active Substance: IDARUBICIN HYDROCHLORIDE
     Dosage: 10 MG, 1X/DAY (20 MG, 20 MG, 10 MG D1?D3 QD)
     Route: 042
  3. CYTOSAR [Suspect]
     Active Substance: CYTARABINE
     Dosage: 0.1 G, 2X/DAY
     Route: 042
     Dates: start: 20210619, end: 20210622
  4. CYTOSAR [Suspect]
     Active Substance: CYTARABINE
     Indication: ACUTE MYELOID LEUKAEMIA
     Dosage: 0.1 G, 2X/DAY
     Route: 042
     Dates: start: 20210616
  5. IDARUBICIN HCL [Suspect]
     Active Substance: IDARUBICIN HYDROCHLORIDE
     Indication: ACUTE MYELOID LEUKAEMIA
     Dosage: 20 MG, 1X/DAY (20 MG, 20 MG, 10 MG D1?D3 QD)
     Route: 042
     Dates: start: 20210616
  6. AN XIN [BIAPENEM] [Suspect]
     Active Substance: BIAPENEM
     Indication: ACUTE MYELOID LEUKAEMIA
     Dosage: 0.3 G, 2X/DAY
     Route: 041
     Dates: start: 20210619, end: 20210622

REACTIONS (7)
  - Discomfort [Recovering/Resolving]
  - Agranulocytosis [Unknown]
  - Myelosuppression [Unknown]
  - Infection [Unknown]
  - Drug eruption [Recovering/Resolving]
  - Rash maculo-papular [Recovering/Resolving]
  - Pyrexia [Unknown]

NARRATIVE: CASE EVENT DATE: 20210619
